FAERS Safety Report 12425494 (Version 1)
Quarter: 2016Q2

REPORT INFORMATION
  Report Type: Spontaneous
  Country: FR (occurrence: FR)
  Receive Date: 20160601
  Receipt Date: 20160601
  Transmission Date: 20160815
  Serious: Yes (Hospitalization)
  Sender: FDA-Public Use
  Company Number: FR-BRISTOL-MYERS SQUIBB COMPANY-BMS-2016-042123

PATIENT
  Age: 84 Year
  Sex: Female

DRUGS (2)
  1. AUGMENTIN [Suspect]
     Active Substance: AMOXICILLIN\CLAVULANATE POTASSIUM
     Indication: PNEUMONIA
     Dosage: UNK
     Route: 042
     Dates: start: 201412, end: 201412
  2. AZACTAM [Suspect]
     Active Substance: AZTREONAM
     Indication: PNEUMONIA
     Dosage: UNK
     Route: 042
     Dates: start: 201412, end: 201412

REACTIONS (1)
  - Acute generalised exanthematous pustulosis [Recovered/Resolved]

NARRATIVE: CASE EVENT DATE: 201412
